FAERS Safety Report 22590677 (Version 1)
Quarter: 2023Q2

REPORT INFORMATION
  Report Type: Report from Study
  Country: MX (occurrence: MX)
  Receive Date: 20230612
  Receipt Date: 20230612
  Transmission Date: 20230721
  Serious: Yes (Other)
  Sender: FDA-Public Use
  Company Number: MX-ABBOTT-2023A-1365115

PATIENT
  Sex: Male
  Weight: 77 kg

DRUGS (7)
  1. LIPIDIL [Suspect]
     Active Substance: FENOFIBRATE
     Indication: Atrioventricular block
     Dosage: ONE CAPSULE DAILY, DAILY DOSE: 200 MILLIGRAM?200 MG
     Route: 048
     Dates: start: 202302, end: 202304
  2. LIPIDIL [Suspect]
     Active Substance: FENOFIBRATE
     Indication: Atrioventricular block
     Dosage: ONE CAPSULE DAILY, ?DAILY DOSE 200 MILLIGRAM
     Route: 048
     Dates: start: 20230602
  3. CLOPIDOGREL [Concomitant]
     Active Substance: CLOPIDOGREL BISULFATE
     Indication: Thrombosis prophylaxis
     Dosage: ONE DAILY
     Route: 048
  4. AMLODIPINE [Concomitant]
     Active Substance: AMLODIPINE BESYLATE
     Indication: Hypertension
     Dosage: ONE DAILY
     Route: 048
  5. METFORMIN [Concomitant]
     Active Substance: METFORMIN HYDROCHLORIDE
     Indication: Product used for unknown indication
     Dosage: ONE DAILY? 850 MG
     Route: 048
  6. IRBESARTAN [Concomitant]
     Active Substance: IRBESARTAN
     Indication: Hypertension
     Dosage: ONE DAILY?300 MG
     Route: 048
  7. LINAGLIPTIN [Concomitant]
     Active Substance: LINAGLIPTIN
     Indication: Blood glucose
     Dosage: ONE DAILY
     Route: 048

REACTIONS (3)
  - Cardiac disorder [Unknown]
  - Product use in unapproved indication [Unknown]
  - Body height decreased [Unknown]
